FAERS Safety Report 10657806 (Version 1)
Quarter: 2014Q4

REPORT INFORMATION
  Report Type: Spontaneous
  Country: US (occurrence: None)
  Receive Date: 20141205
  Receipt Date: 20141205
  Transmission Date: 20150529
  Serious: Yes (Other)
  Sender: FDA-Public Use
  Company Number: 163-POMAL-14093625

PATIENT
  Age: 67 Year
  Sex: Female

DRUGS (1)
  1. POMALYST [Suspect]
     Active Substance: POMALIDOMIDE
     Indication: PLASMA CELL MYELOMA
     Dosage: 21 IN 285 D
     Route: 048
     Dates: start: 20140825, end: 20140914

REACTIONS (2)
  - Nausea [None]
  - Mouth ulceration [None]

NARRATIVE: CASE EVENT DATE: 2014
